FAERS Safety Report 7042173-0 (Version None)
Quarter: 2010Q4

REPORT INFORMATION
  Report Type: 
  Country: None (occurrence: None)
  Receive Date: 20101013
  Receipt Date: 20090824
  Transmission Date: 20110411
  Serious: No
  Sender: FDA-Public Use
  Company Number: US-ASTRAZENECA-2009SE09537

PATIENT
  Age: 63 Year
  Sex: Female
  Weight: 81.5 kg

DRUGS (4)
  1. SYMBICORT [Suspect]
     Indication: CHRONIC OBSTRUCTIVE PULMONARY DISEASE
     Route: 055
     Dates: start: 20090528
  2. PROVENTIL [Concomitant]
  3. HIGH BLOOD PRESSURE MEDICATION [Concomitant]
  4. HIGH CHOLESTEROL MEDICATION [Concomitant]

REACTIONS (1)
  - ABDOMINAL PAIN UPPER [None]
